FAERS Safety Report 10339484 (Version 1)
Quarter: 2014Q3

REPORT INFORMATION
  Report Type: Spontaneous
  Country: US (occurrence: None)
  Receive Date: 20140723
  Receipt Date: 20140723
  Transmission Date: 20150326
  Serious: Yes (Hospitalization)
  Sender: FDA-Public Use
  Company Number: None

PATIENT
  Age: 63 Year
  Sex: Male
  Weight: 116.6 kg

DRUGS (2)
  1. SULFAMETHOXAZOLE/TREIMETHOPRIM [Suspect]
     Active Substance: SULFAMETHOXAZOLE\TRIMETHOPRIM
     Indication: OSTEOMYELITIS
     Dosage: 1 TAB TAB EVERY DAY PO
     Route: 048
     Dates: start: 20140523, end: 20140603
  2. LISINOPRIL. [Suspect]
     Active Substance: LISINOPRIL
     Indication: HYPERTENSION
     Route: 048
     Dates: start: 20011226

REACTIONS (5)
  - Dialysis [None]
  - Hypoxia [None]
  - Cough [None]
  - Urinary tract infection [None]
  - Renal failure acute [None]

NARRATIVE: CASE EVENT DATE: 20140603
